FAERS Safety Report 9654706 (Version 1)
Quarter: 2013Q4

REPORT INFORMATION
  Report Type: Spontaneous
  Country: DE (occurrence: None)
  Receive Date: 20131022
  Receipt Date: 20131022
  Transmission Date: 20140711
  Serious: Yes (Death)
  Sender: FDA-Public Use
  Company Number: 2013038429

PATIENT
  Age: 4 Day
  Sex: Female

DRUGS (3)
  1. PRIVIGEN [Suspect]
     Indication: INFECTION
     Dosage: NEARLY 10 (UNITS UNKNOWN)
     Dates: start: 20130918, end: 20130918
  2. CUROSURF [Suspect]
     Indication: PREMATURE BABY
     Route: 037
     Dates: start: 20130916, end: 20130916
  3. HEPARIN (HEPARIN) [Concomitant]

REACTIONS (2)
  - Respiratory tract haemorrhage [None]
  - Neonatal asphyxia [None]
